FAERS Safety Report 6343659-4 (Version None)
Quarter: 2009Q3

REPORT INFORMATION
  Report Type: 
  Country: None (occurrence: None)
  Receive Date: 20090904
  Receipt Date: 20090904
  Transmission Date: 20100115
  Serious: Yes (Other)
  Sender: FDA-Public Use
  Company Number: None

PATIENT
  Sex: Female
  Weight: 77.1115 kg

DRUGS (2)
  1. CIPROFLOXACIN HYDROCHLORIDE [Suspect]
     Indication: CYSTITIS
     Dosage: 500 MG 1 TABLET 2X A DAY 5 DAYS
     Dates: start: 20090504, end: 20090509
  2. SULFAMETHOXAZOLE [Suspect]
     Indication: CYSTITIS
     Dosage: TMD DS 1 TABLET 2X A DAY 5 DAYS
     Dates: start: 20090515, end: 20090520

REACTIONS (5)
  - INGUINAL HERNIA [None]
  - JOINT SPRAIN [None]
  - JOINT SWELLING [None]
  - SKIN DISCOLOURATION [None]
  - VISION BLURRED [None]
